FAERS Safety Report 18733603 (Version 4)
Quarter: 2021Q4

REPORT INFORMATION
  Report Type: Report from Study
  Country: KR (occurrence: KR)
  Receive Date: 20210113
  Receipt Date: 20211104
  Transmission Date: 20220303
  Serious: Yes (Death, Hospitalization)
  Sender: FDA-Public Use
  Company Number: KR-ABBVIE-21K-090-3726954-00

PATIENT
  Age: 79 Year
  Sex: Female

DRUGS (18)
  1. GLECAPREVIR\PIBRENTASVIR [Suspect]
     Active Substance: GLECAPREVIR\PIBRENTASVIR
     Indication: Chronic hepatitis C
     Route: 048
     Dates: start: 20201014
  2. FEROBA YOU [Concomitant]
     Indication: Anaemia prophylaxis
     Dosage: SUSTAINED RELEASE
     Route: 048
     Dates: start: 20200721, end: 20201130
  3. LANSOPRAZOLE [Concomitant]
     Active Substance: LANSOPRAZOLE
     Indication: Gastric ulcer
     Route: 048
     Dates: start: 20200704, end: 20201130
  4. URSODIOL [Concomitant]
     Active Substance: URSODIOL
     Indication: Hepatic function abnormal
     Route: 048
     Dates: start: 20201028, end: 20201130
  5. JOINS [Concomitant]
     Indication: Spinal stenosis
     Route: 048
     Dates: start: 20201028, end: 20201130
  6. POLYBUTINE [Concomitant]
     Indication: Gastric ulcer
     Route: 048
     Dates: start: 20201028, end: 20201130
  7. LINAGLIPTIN [Concomitant]
     Active Substance: LINAGLIPTIN
     Indication: Diabetes mellitus
     Route: 048
     Dates: start: 20200706, end: 20201130
  8. METHIMAZOLE [Concomitant]
     Active Substance: METHIMAZOLE
     Indication: Basedow^s disease
     Route: 048
     Dates: start: 20200904, end: 20201110
  9. FOLIC ACID [Concomitant]
     Active Substance: FOLIC ACID
     Indication: Basedow^s disease
     Route: 048
     Dates: start: 20200911, end: 20201110
  10. TELMIONE [Concomitant]
     Indication: Hypertension
     Route: 048
     Dates: start: 20201029, end: 20201108
  11. TWOLION [Concomitant]
     Indication: Allergy prophylaxis
     Route: 048
     Dates: start: 20201030, end: 20201130
  12. HERBALS [Concomitant]
     Active Substance: HERBALS
     Indication: Prophylaxis
     Route: 048
     Dates: start: 20201030, end: 20201130
  13. GLUCOPHAGE [Concomitant]
     Active Substance: METFORMIN HYDROCHLORIDE
     Indication: Diabetes mellitus
     Route: 048
     Dates: start: 20201030, end: 20201130
  14. LASIX [Concomitant]
     Active Substance: FUROSEMIDE
     Indication: Glomerulonephritis membranoproliferative
     Route: 048
     Dates: start: 20201104, end: 20201130
  15. ALDACTONE [Concomitant]
     Active Substance: SPIRONOLACTONE
     Indication: Glomerulonephritis membranoproliferative
     Route: 048
     Dates: start: 20201104, end: 20201130
  16. PREDNISOLONE [Concomitant]
     Active Substance: PREDNISOLONE
     Indication: Glomerulonephritis membranoproliferative
     Route: 048
     Dates: start: 20201110, end: 20201130
  17. SULFAMETHOXAZOLE\TRIMETHOPRIM [Concomitant]
     Active Substance: SULFAMETHOXAZOLE\TRIMETHOPRIM
     Indication: Glomerulonephritis membranoproliferative
     Route: 048
     Dates: start: 20201118, end: 20201130
  18. JANUMET [Concomitant]
     Active Substance: METFORMIN HYDROCHLORIDE\SITAGLIPTIN PHOSPHATE
     Indication: Diabetes mellitus
     Dosage: XR 50/500MG
     Route: 048
     Dates: start: 20201118, end: 20201130

REACTIONS (2)
  - Chronic kidney disease [Fatal]
  - Chronic kidney disease [Recovered/Resolved]

NARRATIVE: CASE EVENT DATE: 20201028
